FAERS Safety Report 14572739 (Version 1)
Quarter: 2018Q1

REPORT INFORMATION
  Report Type: Spontaneous
  Country: US (occurrence: US)
  Receive Date: 20180221
  Receipt Date: 20180221
  Transmission Date: 20180509
  Serious: Yes (Hospitalization)
  Sender: FDA-Public Use
  Company Number: None

PATIENT
  Age: 50 Year
  Sex: Female

DRUGS (29)
  1. FOLIC ACID. [Concomitant]
     Active Substance: FOLIC ACID
  2. GLUCOTROL [Concomitant]
     Active Substance: GLIPIZIDE
  3. SPIRIVA [Concomitant]
     Active Substance: TIOTROPIUM BROMIDE MONOHYDRATE
  4. TIZANIDINE. [Concomitant]
     Active Substance: TIZANIDINE
  5. SYMBICORT [Concomitant]
     Active Substance: BUDESONIDE\FORMOTEROL FUMARATE DIHYDRATE
  6. LIPITORE [Concomitant]
  7. FERROUS SULF [Concomitant]
     Active Substance: FERROUS SULFATE
  8. CLONIDINE. [Concomitant]
     Active Substance: CLONIDINE
  9. ALBUTEROL. [Concomitant]
     Active Substance: ALBUTEROL
  10. NICOTINE. [Concomitant]
     Active Substance: NICOTINE
  11. NEURONTIN [Concomitant]
     Active Substance: GABAPENTIN
  12. BACLOFEN. [Concomitant]
     Active Substance: BACLOFEN
  13. ATIVAN [Concomitant]
     Active Substance: LORAZEPAM
  14. ERGOCALCIFER [Concomitant]
  15. LANSOPRAZOLE. [Concomitant]
     Active Substance: LANSOPRAZOLE
  16. MINIPRESS [Concomitant]
     Active Substance: PRAZOSIN HYDROCHLORIDE
  17. LIPITOR [Concomitant]
     Active Substance: ATORVASTATIN CALCIUM
  18. GABAPENTIN. [Concomitant]
     Active Substance: GABAPENTIN
  19. HYDROCO/APAP [Concomitant]
     Active Substance: ACETAMINOPHEN\HYDROCODONE
  20. FARRETTS [Concomitant]
  21. FETZIMA [Concomitant]
     Active Substance: LEVOMILNACIPRAN HYDROCHLORIDE
  22. ASMANEX [Concomitant]
     Active Substance: MOMETASONE FUROATE
  23. BARACLUDE [Suspect]
     Active Substance: ENTECAVIR
     Indication: HEPATITIS B
     Route: 048
     Dates: start: 20151028
  24. PROMETHAZINE [Concomitant]
     Active Substance: PROMETHAZINE\PROMETHAZINE HYDROCHLORIDE
  25. MORPHINE SULF [Concomitant]
     Active Substance: MORPHINE SULFATE
  26. VENTOLIN [Concomitant]
     Active Substance: ALBUTEROL SULFATE
  27. LITHIUM CARB [Concomitant]
     Active Substance: LITHIUM CARBONATE
  28. CYMBALTA [Concomitant]
     Active Substance: DULOXETINE HYDROCHLORIDE
  29. METOPROLOL TARTRATE. [Concomitant]
     Active Substance: METOPROLOL TARTRATE

REACTIONS (3)
  - Bipolar disorder [None]
  - Post-traumatic stress disorder [None]
  - Insomnia [None]

NARRATIVE: CASE EVENT DATE: 20180209
